FAERS Safety Report 19131856 (Version 7)
Quarter: 2022Q3

REPORT INFORMATION
  Report Type: Spontaneous
  Country: FR (occurrence: FR)
  Receive Date: 20210413
  Receipt Date: 20220909
  Transmission Date: 20221026
  Serious: Yes (Hospitalization, Other)
  Sender: FDA-Public Use
  Company Number: FR-SA-2020SA032690

PATIENT
  Age: 50 Year
  Sex: Female
  Weight: 102.8 kg

DRUGS (13)
  1. METHOTREXATE SODIUM [Suspect]
     Active Substance: METHOTREXATE SODIUM
     Dosage: 5 MG, WEEKLY
  2. METHOTREXATE SODIUM [Suspect]
     Active Substance: METHOTREXATE SODIUM
     Dosage: 15 MG, WEEKLY
     Dates: start: 2016, end: 2017
  3. METHOTREXATE SODIUM [Suspect]
     Active Substance: METHOTREXATE SODIUM
     Dosage: 10 MG, WEEKLY
     Dates: start: 201710
  4. METHOTREXATE SODIUM [Suspect]
     Active Substance: METHOTREXATE SODIUM
     Dosage: 5 MG, WEEKLY
     Dates: end: 201903
  5. PLAQUENIL [Suspect]
     Active Substance: HYDROXYCHLOROQUINE SULFATE
     Indication: Arthralgia
     Dosage: 2 DF, 1X/DAY
     Route: 048
     Dates: start: 20150724, end: 20150820
  6. PLAQUENIL [Suspect]
     Active Substance: HYDROXYCHLOROQUINE SULFATE
     Indication: Arthritis
     Dosage: 2 DF, 1X/DAY
     Route: 048
     Dates: start: 201508, end: 20150903
  7. PREDNISOLONE [Suspect]
     Active Substance: PREDNISOLONE
     Dosage: UNK
  8. LEVOTHYROXINE [Concomitant]
     Active Substance: LEVOTHYROXINE
     Indication: Thyroid disorder
     Dosage: 125 PG
  9. ACUPAN [Concomitant]
     Active Substance: NEFOPAM HYDROCHLORIDE
     Dosage: 6 AMPOULES, DAILY
  10. METHOTREXATE [Concomitant]
     Active Substance: METHOTREXATE
     Dosage: 20 MG, WEEKLY
  11. AUGMENTIN [Concomitant]
     Active Substance: AMOXICILLIN\CLAVULANATE POTASSIUM
     Dosage: UNK
  12. HUMIRA [Concomitant]
     Active Substance: ADALIMUMAB
     Dosage: UNK
     Dates: start: 201903, end: 201908
  13. TALTZ [Concomitant]
     Active Substance: IXEKIZUMAB
     Dosage: 80 MG/4 WEEK
     Dates: start: 201908

REACTIONS (34)
  - Dyspnoea [Recovering/Resolving]
  - Epidermal necrosis [Unknown]
  - Toxic epidermal necrolysis [Unknown]
  - Pyrexia [Recovered/Resolved]
  - Skin exfoliation [Unknown]
  - Toxic skin eruption [Unknown]
  - Acute generalised exanthematous pustulosis [Unknown]
  - Rash [Unknown]
  - Rash pustular [Unknown]
  - Rash pruritic [Unknown]
  - Pustular psoriasis [Unknown]
  - Cell death [Unknown]
  - Cholestasis [Unknown]
  - Eosinophil count increased [Unknown]
  - Dermatitis psoriasiform [Unknown]
  - Rash [Unknown]
  - Dermatitis exfoliative generalised [Unknown]
  - Staphylococcal bacteraemia [Unknown]
  - Pustule [Unknown]
  - Rheumatoid arthritis [Unknown]
  - Anxiety [Unknown]
  - Pallor [Unknown]
  - Diffuse alopecia [Unknown]
  - Arthralgia [Unknown]
  - Incorrect dose administered [Unknown]
  - Back pain [Unknown]
  - Skin reaction [Unknown]
  - Erythema [Unknown]
  - Normocytic anaemia [Unknown]
  - Iron deficiency [Unknown]
  - Photosensitivity reaction [Unknown]
  - Pain in extremity [Unknown]
  - Myalgia [Unknown]
  - Intervertebral disc degeneration [Unknown]

NARRATIVE: CASE EVENT DATE: 20150101
